FAERS Safety Report 10195741 (Version 1)
Quarter: 2014Q2

REPORT INFORMATION
  Report Type: Other
  Country: ES (occurrence: ES)
  Receive Date: 20140527
  Receipt Date: 20140527
  Transmission Date: 20141212
  Serious: Yes (Death, Hospitalization)
  Sender: FDA-Public Use
  Company Number: ES-BRISTOL-MYERS SQUIBB COMPANY-20799680

PATIENT
  Age: 36 Year
  Sex: Male

DRUGS (4)
  1. ARIPIPRAZOLE [Suspect]
     Indication: DEPRESSION
  2. TOPIRAMATE [Suspect]
     Indication: DEPRESSION
  3. VENLAFAXINE HCL [Suspect]
     Indication: DEPRESSION
  4. ATORVASTATIN [Concomitant]

REACTIONS (1)
  - Heat stroke [Fatal]
